FAERS Safety Report 4981081-3 (Version None)
Quarter: 2006Q2

REPORT INFORMATION
  Report Type: 
  Country: None (occurrence: None)
  Receive Date: 20060421
  Receipt Date: 20060228
  Transmission Date: 20061013
  Serious: Yes (Other)
  Sender: FDA-Public Use
  Company Number: US-2006-008774

PATIENT
  Age: 80 Year
  Sex: Male
  Weight: 103 kg

DRUGS (1)
  1. REFLUDAN [Suspect]
     Indication: HEPARIN-INDUCED THROMBOCYTOPENIA
     Dosage: SEE IMAGE

REACTIONS (5)
  - ANTICOAGULATION DRUG LEVEL BELOW THERAPEUTIC [None]
  - EMBOLISM [None]
  - HAEMATURIA [None]
  - HEPARIN-INDUCED THROMBOCYTOPENIA [None]
  - THROMBOSIS [None]
